FAERS Safety Report 19205939 (Version 2)
Quarter: 2021Q4

REPORT INFORMATION
  Report Type: Spontaneous
  Country: FR (occurrence: FR)
  Receive Date: 20210503
  Receipt Date: 20211005
  Transmission Date: 20220303
  Serious: Yes (Life-Threatening)
  Sender: FDA-Public Use
  Company Number: None

PATIENT
  Age: 42 Year
  Sex: Male

DRUGS (9)
  1. TOVIAZ [Suspect]
     Active Substance: FESOTERODINE FUMARATE
     Dosage: 4 MG, 1X/DAY
     Route: 048
     Dates: start: 20191231
  2. PERINDOPRIL [Suspect]
     Active Substance: PERINDOPRIL
     Dosage: UNK
     Route: 048
     Dates: start: 20200101
  3. TERALITHE [Suspect]
     Active Substance: LITHIUM CARBONATE
     Indication: Childhood psychosis
     Dosage: 2.5 DF, 1X/DAY
     Route: 048
     Dates: start: 20200309
  4. NALTREXONE [Suspect]
     Active Substance: NALTREXONE
     Dosage: 50 MG, 1X/DAY
     Route: 048
     Dates: start: 20200323
  5. DIAZEPAM [Suspect]
     Active Substance: DIAZEPAM
     Indication: Mixed anxiety and depressive disorder
     Dosage: 25 MG, DAILY
     Route: 048
     Dates: start: 20201027
  6. INDAPAMIDE [Suspect]
     Active Substance: INDAPAMIDE
     Dosage: UNK
     Route: 048
     Dates: start: 20200101
  7. CYAMEMAZINE [Suspect]
     Active Substance: CYAMEMAZINE
     Indication: Childhood psychosis
     Dosage: 175 MG, DAILY
     Route: 048
     Dates: start: 20210129
  8. BACTRIM [Suspect]
     Active Substance: SULFAMETHOXAZOLE\TRIMETHOPRIM
     Indication: Ear infection
     Dosage: 2 DF, DAILY
     Route: 048
     Dates: start: 20210219, end: 20210301
  9. HALDOL [Suspect]
     Active Substance: HALOPERIDOL
     Indication: Childhood psychosis
     Dosage: 20 MG, DAILY
     Route: 048
     Dates: start: 20200319

REACTIONS (1)
  - Subileus [Recovered/Resolved]

NARRATIVE: CASE EVENT DATE: 20210222
